FAERS Safety Report 5573255-8 (Version None)
Quarter: 2007Q4

REPORT INFORMATION
  Report Type: 
  Country: None (occurrence: None)
  Receive Date: 20071220
  Receipt Date: 20071209
  Transmission Date: 20080405
  Serious: Yes (Other)
  Sender: FDA-Public Use
  Company Number: CHPA2007US13713

PATIENT
  Age: 35 Year
  Sex: Female

DRUGS (1)
  1. THERAFLU FLU AND SORE THROAT (NCH)(PARACETAMOL, DIPHENHYDRAMINE, PHENY [Suspect]
     Indication: NASOPHARYNGITIS
     Dosage: 6 TSP, TID, ORAL
     Route: 048
     Dates: start: 20071208, end: 20071208

REACTIONS (3)
  - RASH ERYTHEMATOUS [None]
  - RASH PRURITIC [None]
  - SWELLING FACE [None]
